FAERS Safety Report 8295059-8 (Version None)
Quarter: 2012Q2

REPORT INFORMATION
  Report Type: 
  Country: None (occurrence: None)
  Receive Date: 20120413
  Receipt Date: 20120402
  Transmission Date: 20120825
  Serious: Yes (Hospitalization, Other)
  Sender: FDA-Public Use
  Company Number: 217020

PATIENT
  Age: 50 Year
  Sex: Male

DRUGS (2)
  1. VENOFER [Concomitant]
  2. INNOHEP [Suspect]
     Indication: PRODUCT USED FOR UNKNOWN INDICATION
     Dosage: 2500

REACTIONS (5)
  - CREATININE RENAL CLEARANCE INCREASED [None]
  - AGITATION [None]
  - BLOOD PRESSURE DECREASED [None]
  - ANAPHYLACTIC REACTION [None]
  - PALPITATIONS [None]
